FAERS Safety Report 6179203-4 (Version None)
Quarter: 2009Q2

REPORT INFORMATION
  Report Type: 
  Country: None (occurrence: None)
  Receive Date: 20090505
  Receipt Date: 20090424
  Transmission Date: 20091009
  Serious: Yes (Hospitalization, Disabling)
  Sender: FDA-Public Use
  Company Number: US-SANOFI-SYNTHELABO-A03200705205

PATIENT
  Sex: Female
  Weight: 54.4 kg

DRUGS (12)
  1. AMBIEN [Suspect]
     Indication: DRUG USE FOR UNKNOWN INDICATION
     Route: 048
     Dates: start: 20031027, end: 20060101
  2. AMBIEN [Suspect]
     Dosage: UNK
     Route: 048
     Dates: start: 20040420, end: 20050101
  3. CALCIUM CARBONATE [Concomitant]
     Indication: DRUG USE FOR UNKNOWN INDICATION
     Route: 048
  4. NORVASC [Concomitant]
     Indication: DRUG USE FOR UNKNOWN INDICATION
     Route: 048
     Dates: start: 20040127
  5. LOPRESSOR [Concomitant]
     Indication: DRUG USE FOR UNKNOWN INDICATION
     Route: 048
  6. PREDNISONE [Concomitant]
     Indication: LIVER TRANSPLANT
     Route: 048
  7. PROGRAF [Concomitant]
     Indication: DRUG USE FOR UNKNOWN INDICATION
     Route: 048
  8. PROGRAF [Concomitant]
     Route: 065
     Dates: start: 20050627
  9. CELEBREX [Concomitant]
     Indication: DRUG USE FOR UNKNOWN INDICATION
     Route: 048
  10. URSO 250 [Concomitant]
     Indication: DRUG USE FOR UNKNOWN INDICATION
     Route: 048
  11. FOSAMAX [Concomitant]
     Indication: DRUG USE FOR UNKNOWN INDICATION
     Route: 048
  12. ALTACE [Concomitant]
     Indication: DRUG USE FOR UNKNOWN INDICATION
     Route: 048

REACTIONS (13)
  - AMNESIA [None]
  - CLAVICLE FRACTURE [None]
  - FALL [None]
  - HUMERUS FRACTURE [None]
  - PRODUCT QUALITY ISSUE [None]
  - RADIAL NERVE PALSY [None]
  - RADIUS FRACTURE [None]
  - SOMNAMBULISM [None]
  - SYNCOPE [None]
  - THORACIC VERTEBRAL FRACTURE [None]
  - TRAUMATIC ARTHRITIS [None]
  - ULNA FRACTURE [None]
  - WRIST FRACTURE [None]
